FAERS Safety Report 7723492-9 (Version None)
Quarter: 2011Q3

REPORT INFORMATION
  Report Type: 
  Country: None (occurrence: None)
  Receive Date: 20110901
  Receipt Date: 20110819
  Transmission Date: 20111222
  Serious: Yes (Other)
  Sender: FDA-Public Use
  Company Number: US-UCBSA-039758

PATIENT
  Sex: Female
  Weight: 81.6 kg

DRUGS (7)
  1. ALLOPURINOL [Concomitant]
  2. ANTIHYPERTENSIVES [Concomitant]
  3. LORTAB [Suspect]
     Route: 048
     Dates: end: 20110728
  4. ACETAMINOPHEN [Suspect]
     Indication: ARTHRITIS
     Route: 048
     Dates: start: 20110802, end: 20110803
  5. CYMBALTA [Suspect]
     Route: 048
     Dates: end: 20110728
  6. THYROID THERAPY [Concomitant]
  7. PLAVIX [Concomitant]

REACTIONS (1)
  - HALLUCINATION [None]
